APPROVED DRUG PRODUCT: DAPSONE
Active Ingredient: DAPSONE
Strength: 25MG
Dosage Form/Route: TABLET;ORAL
Application: A206505 | Product #001 | TE Code: AB
Applicant: NOVITIUM PHARMA LLC
Approved: Dec 1, 2016 | RLD: No | RS: No | Type: RX